FAERS Safety Report 18032618 (Version 2)
Quarter: 2020Q3

REPORT INFORMATION
  Report Type: Report from Study
  Country: BE (occurrence: BE)
  Receive Date: 20200716
  Receipt Date: 20200811
  Transmission Date: 20201103
  Serious: Yes (Hospitalization)
  Sender: FDA-Public Use
  Company Number: BE-PFIZER INC-2020270636

PATIENT
  Age: 63 Year
  Sex: Male

DRUGS (11)
  1. AMLOR [Concomitant]
     Active Substance: AMLODIPINE BESYLATE
     Indication: HYPERTENSION
     Route: 048
     Dates: start: 201807
  2. AVELUMAB [Suspect]
     Active Substance: AVELUMAB
     Dosage: 10 MG/KG (720 MG)
     Route: 042
     Dates: start: 20200729
  3. IRINOTECAN HCL [Suspect]
     Active Substance: IRINOTECAN HYDROCHLORIDE
     Indication: COLORECTAL CANCER METASTATIC
     Dosage: 150 MG/M2
     Route: 042
     Dates: start: 20200122, end: 20200630
  4. IRINOTECAN HCL [Suspect]
     Active Substance: IRINOTECAN HYDROCHLORIDE
     Dosage: 150 MG/M2
     Route: 042
     Dates: start: 20200729
  5. TOUJEO [Concomitant]
     Active Substance: INSULIN GLARGINE
     Indication: DIABETES MELLITUS
     Route: 058
     Dates: start: 201811
  6. SIMVASTATIN. [Concomitant]
     Active Substance: SIMVASTATIN
     Indication: PROPHYLAXIS
     Route: 048
  7. AVELUMAB [Suspect]
     Active Substance: AVELUMAB
     Indication: COLORECTAL CANCER METASTATIC
     Dosage: 10 MG/KG (720 MG)
     Route: 042
     Dates: start: 20200204
  8. CETUXIMAB. [Suspect]
     Active Substance: CETUXIMAB
     Dosage: 500 MG/M2 (888MG)
     Route: 042
     Dates: start: 20200729
  9. CETUXIMAB. [Suspect]
     Active Substance: CETUXIMAB
     Dosage: 500 MG/M2 (888MG)
     Route: 042
     Dates: end: 20200630
  10. AVELUMAB [Suspect]
     Active Substance: AVELUMAB
     Dosage: 10 MG/KG (720 MG)
     Route: 042
     Dates: start: 20200630
  11. CETUXIMAB. [Suspect]
     Active Substance: CETUXIMAB
     Indication: COLORECTAL CANCER METASTATIC
     Dosage: 400 MG/M2 (717MG)
     Route: 042
     Dates: start: 20200122, end: 20200122

REACTIONS (2)
  - Pyrexia [Recovered/Resolved]
  - Cholangitis [Recovered/Resolved]

NARRATIVE: CASE EVENT DATE: 20200712
